FAERS Safety Report 8173369-2 (Version None)
Quarter: 2012Q1

REPORT INFORMATION
  Report Type: 
  Country: None (occurrence: None)
  Receive Date: 20120229
  Receipt Date: 20120221
  Transmission Date: 20120608
  Serious: Yes (Other)
  Sender: FDA-Public Use
  Company Number: US-ASTELLAS-2012US002097

PATIENT
  Sex: Female
  Weight: 69 kg

DRUGS (1)
  1. PROGRAF [Suspect]
     Indication: PANCREAS TRANSPLANT
     Dosage: 7 MG, UID/QD
     Route: 048
     Dates: start: 20020711

REACTIONS (2)
  - RENAL TRANSPLANT [None]
  - OFF LABEL USE [None]
